FAERS Safety Report 14968621 (Version 1)
Quarter: 2018Q2

REPORT INFORMATION
  Report Type: Spontaneous
  Country: US (occurrence: US)
  Receive Date: 20180604
  Receipt Date: 20180604
  Transmission Date: 20180711
  Serious: No
  Sender: FDA-Public Use
  Company Number: US-ASCEND THERAPEUTICS-2048920

PATIENT
  Sex: Female

DRUGS (1)
  1. ESTROGEL [Suspect]
     Active Substance: ESTRADIOL
     Indication: HORMONE REPLACEMENT THERAPY
     Route: 062

REACTIONS (2)
  - Drug ineffective [None]
  - Product quality issue [None]
